FAERS Safety Report 4783707-6 (Version None)
Quarter: 2005Q3

REPORT INFORMATION
  Report Type: 
  Country: None (occurrence: None)
  Receive Date: 20050927
  Receipt Date: 20050525
  Transmission Date: 20060218
  Serious: No
  Sender: FDA-Public Use
  Company Number: USA050599085

PATIENT
  Age: 14 Year
  Sex: Female

DRUGS (3)
  1. STRATTERA [Suspect]
     Dosage: 60 MG DAY
     Dates: start: 20030501
  2. ZOLOFT [Concomitant]
  3. CONCERTA [Concomitant]

REACTIONS (10)
  - CRYING [None]
  - DIZZINESS [None]
  - EMOTIONAL DISORDER [None]
  - HEADACHE [None]
  - IMPULSIVE BEHAVIOUR [None]
  - MICTURITION URGENCY [None]
  - OLIGURIA [None]
  - RESIDUAL URINE VOLUME [None]
  - URINARY HESITATION [None]
  - URINARY INCONTINENCE [None]
